FAERS Safety Report 10599639 (Version 1)
Quarter: 2014Q4

REPORT INFORMATION
  Report Type: Spontaneous
  Country: IT (occurrence: IT)
  Receive Date: 20141121
  Receipt Date: 20141121
  Transmission Date: 20150529
  Serious: Yes (Death, Other)
  Sender: FDA-Public Use
  Company Number: IT-CELGENE-ITA-2014112650

PATIENT
  Age: 47 Year

DRUGS (1)
  1. AZACITIDINE. [Suspect]
     Active Substance: AZACITIDINE
     Indication: ACUTE MYELOID LEUKAEMIA
     Route: 050
     Dates: end: 20140330

REACTIONS (3)
  - Acute myeloid leukaemia [Unknown]
  - Hyperpyrexia [Not Recovered/Not Resolved]
  - Death [Fatal]

NARRATIVE: CASE EVENT DATE: 20140507
